FAERS Safety Report 10215915 (Version 1)
Quarter: 2014Q2

REPORT INFORMATION
  Report Type: Spontaneous
  Country: FI (occurrence: None)
  Receive Date: 20140602
  Receipt Date: 20140602
  Transmission Date: 20141212
  Serious: Yes (Other)
  Sender: FDA-Public Use
  Company Number: NGX_02386_2014

PATIENT
  Sex: Female

DRUGS (3)
  1. QUTENZA [Suspect]
     Indication: PAIN
     Dosage: (DF TOPICAL)
     Route: 061
  2. ANTICOAGULANT [Suspect]
     Indication: ATRIAL FIBRILLATION
     Dosage: (DF)
  3. ACYCLOVIR (UNKNOWN) [Concomitant]

REACTIONS (10)
  - Epistaxis [None]
  - Pyrexia [None]
  - Feeling cold [None]
  - Arthralgia [None]
  - Back pain [None]
  - Osteoarthritis [None]
  - Pleural effusion [None]
  - Dry eye [None]
  - Waldenstrom^s macroglobulinaemia [None]
  - Plasma cell myeloma [None]
